FAERS Safety Report 10053563 (Version 1)
Quarter: 2014Q2

REPORT INFORMATION
  Report Type: Spontaneous
  Country: US (occurrence: US)
  Receive Date: 20140402
  Receipt Date: 20140402
  Transmission Date: 20141212
  Serious: Yes (Other)
  Sender: FDA-Public Use
  Company Number: US-PFIZER INC-2014090484

PATIENT
  Sex: Male

DRUGS (1)
  1. PREGABALIN [Suspect]
     Dosage: 50 MG, UNK
     Route: 048
     Dates: start: 20140329

REACTIONS (5)
  - Suicidal ideation [Unknown]
  - Confusional state [Unknown]
  - Anxiety [Unknown]
  - Nervousness [Unknown]
  - Local swelling [Unknown]
